FAERS Safety Report 13944783 (Version 10)
Quarter: 2020Q3

REPORT INFORMATION
  Report Type: Report from Study
  Country: US (occurrence: US)
  Receive Date: 20170907
  Receipt Date: 20200806
  Transmission Date: 20201102
  Serious: Yes (Hospitalization, Other)
  Sender: FDA-Public Use
  Company Number: US-BRISTOL-MYERS SQUIBB COMPANY-BMS-2017-080301

PATIENT
  Age: 81 Year
  Sex: Male

DRUGS (1)
  1. ABATACEPT [Suspect]
     Active Substance: ABATACEPT
     Indication: RHEUMATOID ARTHRITIS
     Dosage: 125 MILLIGRAM, QWK
     Route: 058

REACTIONS (14)
  - Bladder disorder [Unknown]
  - Influenza [Unknown]
  - Infection [Unknown]
  - Back pain [Unknown]
  - Pollakiuria [Unknown]
  - Skin papilloma [Unknown]
  - Neoplasm malignant [Unknown]
  - Blister [Unknown]
  - Condition aggravated [Unknown]
  - Prostatic disorder [Unknown]
  - Device related infection [Unknown]
  - Nasopharyngitis [Recovering/Resolving]
  - Hyperkeratosis [Unknown]
  - Injection site reaction [Unknown]

NARRATIVE: CASE EVENT DATE: 20190507
